FAERS Safety Report 7949326-5 (Version None)
Quarter: 2011Q4

REPORT INFORMATION
  Report Type: 
  Country: None (occurrence: None)
  Receive Date: 20111130
  Receipt Date: 20111121
  Transmission Date: 20120403
  Serious: Yes (Hospitalization)
  Sender: FDA-Public Use
  Company Number: US-BAYER-201039073NA

PATIENT
  Age: 23 Year
  Sex: Female
  Weight: 83 kg

DRUGS (4)
  1. YASMIN [Suspect]
     Indication: ORAL CONTRACEPTION
     Route: 048
     Dates: start: 20060607, end: 20070901
  2. IBUPROFEN [Concomitant]
     Indication: PAIN
     Dosage: 600 MG, PRN
  3. CEFZIL [Concomitant]
  4. MULTI-VITAMINS [Concomitant]
     Dosage: UNK
     Dates: start: 20060101, end: 20060601

REACTIONS (4)
  - PAIN [None]
  - CHOLANGITIS [None]
  - CHOLECYSTITIS ACUTE [None]
  - CHOLECYSTECTOMY [None]
